FAERS Safety Report 4775965-9 (Version None)
Quarter: 2005Q3

REPORT INFORMATION
  Report Type: 
  Country: None (occurrence: None)
  Receive Date: 20050914
  Receipt Date: 20050329
  Transmission Date: 20060218
  Serious: Yes (Death)
  Sender: FDA-Public Use
  Company Number: 163-20785-05030754

PATIENT
  Age: 50 Year
  Sex: Male

DRUGS (2)
  1. THALOMID [Suspect]
     Indication: LEUKAEMIA PLASMACYTIC
     Dosage: 400 MG, DAILY, ORAL
     Route: 048
     Dates: start: 20050214, end: 20050317
  2. THALOMID [Suspect]
     Indication: MULTIPLE MYELOMA
     Dosage: 400 MG, DAILY, ORAL
     Route: 048
     Dates: start: 20050214, end: 20050317

REACTIONS (6)
  - ANOREXIA [None]
  - BONE EROSION [None]
  - BONE MARROW DEPRESSION [None]
  - DEATH [None]
  - DISEASE PROGRESSION [None]
  - PAIN [None]
